FAERS Safety Report 5485384-8 (Version None)
Quarter: 2007Q4

REPORT INFORMATION
  Report Type: 
  Country: None (occurrence: None)
  Receive Date: 20071015
  Receipt Date: 20071003
  Transmission Date: 20080405
  Serious: Yes (Hospitalization)
  Sender: FDA-Public Use
  Company Number: US-KINGPHARMUSA00001-K200701063

PATIENT

DRUGS (7)
  1. ALTACE [Suspect]
     Dosage: UNK, QD
     Route: 048
     Dates: start: 20060615, end: 20070610
  2. CHLORAMINOPHENE [Suspect]
     Indication: GLOMERULONEPHRITIS
     Dosage: 12 MG, QD
     Route: 048
     Dates: start: 20070215, end: 20070315
  3. TAHOR [Suspect]
     Dosage: 20 MG, UNK
     Route: 048
     Dates: start: 20060615, end: 20070610
  4. EFFEXOR                            /01233802/ [Suspect]
     Dosage: UNK, QD
     Dates: start: 20060615, end: 20070610
  5. ALDACTONE [Concomitant]
     Dosage: 75 MG, QD
     Route: 048
  6. LASIX [Concomitant]
     Dosage: 80 MG, QD
     Route: 048
  7. LEVOTHYROX [Concomitant]
     Dosage: 100 UG, QD
     Route: 048

REACTIONS (10)
  - ALANINE AMINOTRANSFERASE INCREASED [None]
  - ASPARTATE AMINOTRANSFERASE INCREASED [None]
  - BLOOD ALKALINE PHOSPHATASE INCREASED [None]
  - GAMMA-GLUTAMYLTRANSFERASE INCREASED [None]
  - GLOMERULONEPHRITIS MEMBRANOUS [None]
  - HEPATITIS CHOLESTATIC [None]
  - IMPETIGO [None]
  - JAUNDICE [None]
  - PRURITUS [None]
  - SCRATCH [None]
